FAERS Safety Report 9475906 (Version 1)
Quarter: 2013Q3

REPORT INFORMATION
  Report Type: Spontaneous
  Country: JP (occurrence: None)
  Receive Date: 20130821
  Receipt Date: 20130821
  Transmission Date: 20140515
  Serious: Yes (Hospitalization)
  Sender: FDA-Public Use
  Company Number: AXC-2013-000395

PATIENT
  Age: 0 Day
  Sex: Female

DRUGS (7)
  1. URSODEOXYCHOLIC ACID [Suspect]
     Indication: FOETAL EXPOSURE DURING PREGNANCY
     Route: 064
     Dates: start: 20120722, end: 20120722
  2. RITODRINE (RITODRINE) [Concomitant]
  3. RESTAMIN (DIPHENHYDRAMINE) [Concomitant]
  4. NICARDIPINE HCL (NICARDIPINE HYDROCHLORIDE) [Concomitant]
  5. ATONIN-O (OXYTOCIN) [Concomitant]
  6. METHYLERGOMETRINE MALEATE (METHYLERGOMETRINE MALEATE) [Concomitant]
  7. LOXONIN (LOXOPROFEN SODIUIM) [Concomitant]

REACTIONS (4)
  - Premature baby [None]
  - Respiratory disorder neonatal [None]
  - Low birth weight baby [None]
  - Maternal drugs affecting foetus [None]
